FAERS Safety Report 10688657 (Version 8)
Quarter: 2016Q3

REPORT INFORMATION
  Report Type: Spontaneous
  Country: CN (occurrence: CN)
  Receive Date: 20150102
  Receipt Date: 20160705
  Transmission Date: 20161109
  Serious: Yes (Other)
  Sender: FDA-Public Use
  Company Number: CN-009507513-1412CHN012937

PATIENT
  Age: 59 Year
  Sex: Female
  Weight: 60 kg

DRUGS (16)
  1. INSULIN [Concomitant]
     Active Substance: INSULIN NOS
     Indication: HYPOGLYCAEMIA
     Dosage: 61 UNITS, QD (DAILY), STRENGTH : UNK
     Route: 041
     Dates: start: 20141210, end: 20141211
  2. CISPLATIN. [Concomitant]
     Active Substance: CISPLATIN
     Indication: CHEMOTHERAPY
     Dosage: 40 MG, CYCLE: DAY1-DAY 3, TREATMENT CYCLE : 1/UNK, TREATMENT REGIMEN : GP
     Route: 041
     Dates: start: 20141209, end: 20141211
  3. POTASSIUM CHLORIDE. [Concomitant]
     Active Substance: POTASSIUM CHLORIDE
     Indication: ELECTROLYTE IMBALANCE
     Dosage: 1 G, QD (DAILY), STRENGTH : UNK
     Route: 041
     Dates: start: 20141210, end: 20141211
  4. EMEND [Suspect]
     Active Substance: APREPITANT
     Dosage: 80 MG, ONCE, DAY 2
     Route: 048
     Dates: start: 20141210, end: 20141210
  5. MATRINE [Concomitant]
     Indication: PROPHYLAXIS
     Dosage: 12 ML/CC, DAILY, STRENGTH : UNK
     Route: 041
     Dates: start: 20141209, end: 20141211
  6. LANSOPRAZOLE. [Concomitant]
     Active Substance: LANSOPRAZOLE
     Indication: PROPHYLAXIS
     Dosage: TOTAL DAILY DOSE 30 MG, TWO TIMES A DAY, STRENGTH : UNK
     Route: 041
     Dates: start: 20141209, end: 20141211
  7. GEMCITABINE [Concomitant]
     Active Substance: GEMCITABINE\GEMCITABINE HYDROCHLORIDE
     Indication: CHEMOTHERAPY
     Dosage: 1.6 MG,CYCLE: DAY1AND DAY 8, TREATMENT CYCLE 1/UNK, TREATMENT REGIMEN : GP
     Route: 041
     Dates: start: 20141209, end: 20141216
  8. PAMIDRONATE DISODIUM. [Concomitant]
     Active Substance: PAMIDRONATE DISODIUM
     Indication: ADJUVANT THERAPY
     Dosage: 90 MG, QD
     Route: 042
     Dates: start: 20141205, end: 20141205
  9. EMEND [Suspect]
     Active Substance: APREPITANT
     Indication: PROPHYLAXIS OF NAUSEA AND VOMITING
     Dosage: 125 MG, ONCE, DAY 1
     Route: 048
     Dates: start: 20141209, end: 20141209
  10. SHEN QI FU ZHENG ZHU SHE YE [Concomitant]
     Indication: IMMUNISATION
     Dosage: 250 ML/CC, DAILY, STRENGTH : UNK
     Route: 041
     Dates: start: 20141209, end: 20141217
  11. SHEN QI FU ZHENG ZHU SHE YE [Concomitant]
     Dosage: 250 ML/CC, DAILY, STRENGTH : UNK
     Route: 041
     Dates: start: 20141207, end: 20141208
  12. DEXAMETHASONE SODIUM PHOSPHATE. [Concomitant]
     Active Substance: DEXAMETHASONE SODIUM PHOSPHATE
     Indication: PROPHYLAXIS OF NAUSEA AND VOMITING
     Dosage: 5 MG, DAILY, STRENGTH : UNK
     Route: 041
     Dates: start: 20141209, end: 20141211
  13. EMEND [Suspect]
     Active Substance: APREPITANT
     Dosage: 80 MG, ONCE, DAY 3
     Route: 048
     Dates: start: 20141211, end: 20141211
  14. MATRINE [Concomitant]
     Dosage: 12 ML/CC, QD
     Route: 042
     Dates: start: 20141205, end: 20141208
  15. TROPISETRON HYDROCHLORIDE [Concomitant]
     Active Substance: TROPISETRON HYDROCHLORIDE
     Indication: PROPHYLAXIS OF NAUSEA AND VOMITING
     Dosage: TOTAL DAILY DOSE 5 MG, BID (TWO TIMES A DAY), STRENGTH : UNK
     Route: 042
     Dates: start: 20141209, end: 20141212
  16. DEXAMETHASONE SODIUM PHOSPHATE. [Concomitant]
     Active Substance: DEXAMETHASONE SODIUM PHOSPHATE
     Dosage: 5 MG, DAILY, STRENGTH : UNK
     Route: 041
     Dates: start: 20141205, end: 20141205

REACTIONS (5)
  - Neutrophil count decreased [Recovered/Resolved]
  - White blood cell count decreased [Recovered/Resolved]
  - Platelet count decreased [Not Recovered/Not Resolved]
  - Haematochezia [Recovered/Resolved]
  - Dizziness [Recovered/Resolved]

NARRATIVE: CASE EVENT DATE: 20141213
